FAERS Safety Report 9509548 (Version 1)
Quarter: 2013Q3

REPORT INFORMATION
  Report Type: Spontaneous
  Country: US (occurrence: US)
  Receive Date: 20130909
  Receipt Date: 20130909
  Transmission Date: 20140515
  Serious: No
  Sender: FDA-Public Use
  Company Number: US-BRISTOL-MYERS SQUIBB COMPANY-17248071

PATIENT
  Age: 17 Day
  Sex: Male

DRUGS (2)
  1. ABILIFY [Suspect]
     Indication: BIPOLAR DISORDER
     Route: 050
  2. LAMICTAL [Suspect]
     Indication: BIPOLAR DISORDER
     Route: 050

REACTIONS (2)
  - Exposure during breast feeding [Unknown]
  - Gastrooesophageal reflux disease [Unknown]
